FAERS Safety Report 13805525 (Version 1)
Quarter: 2017Q3

REPORT INFORMATION
  Report Type: Report from Study
  Country: None (occurrence: US)
  Receive Date: 20170728
  Receipt Date: 20170728
  Transmission Date: 20171127
  Serious: Yes (Other)
  Sender: FDA-Public Use
  Company Number: US-ABBVIE-17K-163-1986224-00

PATIENT
  Age: 31 Year
  Sex: Female

DRUGS (2)
  1. HUMIRA [Suspect]
     Active Substance: ADALIMUMAB
     Indication: PSORIASIS
     Dosage: DAY 1
     Route: 058
     Dates: start: 20170518, end: 20170518
  2. HUMIRA [Suspect]
     Active Substance: ADALIMUMAB
     Dosage: DAY 8
     Route: 058
     Dates: start: 20170525

REACTIONS (9)
  - Exposure during pregnancy [Not Recovered/Not Resolved]
  - Abortion spontaneous [Unknown]
  - Psoriasis [Unknown]
  - Skin irritation [Not Recovered/Not Resolved]
  - Pruritus [Not Recovered/Not Resolved]
  - Pain [Not Recovered/Not Resolved]
  - Injection site rash [Recovered/Resolved]
  - Cough [Recovering/Resolving]
  - Foetal death [Unknown]

NARRATIVE: CASE EVENT DATE: 201705
